FAERS Safety Report 9762253 (Version 1)
Quarter: 2013Q4

REPORT INFORMATION
  Report Type: Spontaneous
  Country: US (occurrence: US)
  Receive Date: 20131216
  Receipt Date: 20131216
  Transmission Date: 20140711
  Serious: No
  Sender: FDA-Public Use
  Company Number: US-BIOGENIDEC-2013BI105467

PATIENT
  Age: 57 Year
  Sex: Female
  Weight: 81 kg

DRUGS (12)
  1. TECFIDERA [Suspect]
     Indication: PRODUCT USED FOR UNKNOWN INDICATION
     Route: 048
  2. RECLAST [Concomitant]
  3. AMPYRA [Concomitant]
  4. HCTZ/TRIAMT [Concomitant]
  5. FLEXERIL [Concomitant]
  6. ATENOLOL [Concomitant]
  7. VITAMIN E [Concomitant]
  8. VITAMIN D [Concomitant]
  9. CITRACAL + D [Concomitant]
  10. CALTRATE 600 [Concomitant]
  11. MOTRIN [Concomitant]
  12. FLAX SEED [Concomitant]

REACTIONS (2)
  - Vaginal haemorrhage [Recovered/Resolved]
  - Hot flush [Unknown]
